FAERS Safety Report 6337819-6 (Version None)
Quarter: 2009Q3

REPORT INFORMATION
  Report Type: 
  Country: None (occurrence: None)
  Receive Date: 20090902
  Receipt Date: 20090828
  Transmission Date: 20100115
  Serious: Yes (Other)
  Sender: FDA-Public Use
  Company Number: A0804852A

PATIENT
  Age: 67 Year
  Sex: Female

DRUGS (10)
  1. ZANTAC [Suspect]
     Dosage: 300MG SEE DOSAGE TEXT
     Route: 048
     Dates: start: 19931001
  2. OPANA (OXYMORPHONE HCL) [Concomitant]
  3. LORTAB [Concomitant]
  4. ENALAPRIL MALEATE [Concomitant]
  5. SIMVASTATIN [Concomitant]
  6. TRANXENE [Concomitant]
  7. AMBIEN [Concomitant]
  8. XANAX [Concomitant]
  9. POTASSIUM CHLORIDE [Concomitant]
  10. DOXYCYCLINE [Concomitant]

REACTIONS (6)
  - ABDOMINAL PAIN UPPER [None]
  - DRUG INEFFECTIVE [None]
  - GASTROENTERITIS [None]
  - GASTROINTESTINAL DISORDER [None]
  - NAUSEA [None]
  - VOMITING [None]
